FAERS Safety Report 5709636-9 (Version None)
Quarter: 2008Q2

REPORT INFORMATION
  Report Type: 
  Country: None (occurrence: None)
  Receive Date: 20080418
  Receipt Date: 20080414
  Transmission Date: 20081010
  Serious: Yes (Other)
  Sender: FDA-Public Use
  Company Number: B0516452A

PATIENT
  Age: 35 Year
  Sex: Female

DRUGS (4)
  1. CLAMOXYL [Suspect]
     Indication: PHARYNGITIS
     Dosage: 1G SINGLE DOSE
     Route: 048
     Dates: start: 20080206
  2. ULTRALEVURE [Concomitant]
     Indication: PHARYNGITIS
     Route: 065
  3. MAXILASE [Concomitant]
     Indication: PHARYNGITIS
     Route: 065
  4. HEXASPRAY [Concomitant]
     Indication: PHARYNGITIS
     Route: 065

REACTIONS (2)
  - ANGIOEDEMA [None]
  - PAINFUL RESPIRATION [None]
